FAERS Safety Report 12755603 (Version 6)
Quarter: 2018Q2

REPORT INFORMATION
  Report Type: Report from Study
  Country: None (occurrence: US)
  Receive Date: 20160916
  Receipt Date: 20180501
  Transmission Date: 20180711
  Serious: Yes (Other)
  Sender: FDA-Public Use
  Company Number: US-ABBVIE-16K-163-1724292-00

PATIENT
  Age: 61 Year
  Sex: Female

DRUGS (2)
  1. HUMIRA [Suspect]
     Active Substance: ADALIMUMAB
     Route: 058
     Dates: start: 201611
  2. HUMIRA [Suspect]
     Active Substance: ADALIMUMAB
     Indication: CROHN^S DISEASE
     Route: 058
     Dates: start: 20150920, end: 2016

REACTIONS (18)
  - Incorrect dose administered [Unknown]
  - Intestinal dilatation [Unknown]
  - Gingival swelling [Unknown]
  - Device issue [Unknown]
  - Injection site extravasation [Recovered/Resolved]
  - Nausea [Unknown]
  - Hyperhidrosis [Recovered/Resolved]
  - Weight increased [Unknown]
  - Antibody test abnormal [Not Recovered/Not Resolved]
  - Crohn^s disease [Not Recovered/Not Resolved]
  - Metabolic surgery [Unknown]
  - Fall [Unknown]
  - Intestinal obstruction [Recovered/Resolved]
  - Injection site pain [Recovered/Resolved]
  - Nasal ulcer [Unknown]
  - Vomiting [Recovered/Resolved]
  - Pyrexia [Unknown]
  - Inflammation [Not Recovered/Not Resolved]

NARRATIVE: CASE EVENT DATE: 201608
